FAERS Safety Report 23458680 (Version 1)
Quarter: 2024Q1

REPORT INFORMATION
  Report Type: Report from Study
  Country: ES (occurrence: ES)
  Receive Date: 20240130
  Receipt Date: 20240130
  Transmission Date: 20240410
  Serious: Yes (Death, Other)
  Sender: FDA-Public Use
  Company Number: ES-JNJFOC-20240160522

PATIENT

DRUGS (1)
  1. IMBRUVICA [Suspect]
     Active Substance: IBRUTINIB
     Indication: Waldenstrom^s macroglobulinaemia
     Route: 048
     Dates: start: 20190101, end: 20230831

REACTIONS (15)
  - Death [Fatal]
  - Headache [Unknown]
  - Chronic lymphocytic leukaemia [Fatal]
  - Thrombocytopenia [Fatal]
  - Haemorrhage [Unknown]
  - Neoplasm [Unknown]
  - Arthralgia [Unknown]
  - Neutropenia [Fatal]
  - Adverse event [Unknown]
  - Oedema [Unknown]
  - Polyneuropathy [Fatal]
  - Gastrointestinal disorder [Unknown]
  - Skin disorder [Unknown]
  - Cardiac disorder [Unknown]
  - Hypertension [Unknown]
